FAERS Safety Report 4433515-0 (Version None)
Quarter: 2004Q3

REPORT INFORMATION
  Report Type: 
  Country: None (occurrence: None)
  Receive Date: 20040824
  Receipt Date: 20040812
  Transmission Date: 20050211
  Serious: Yes (Other)
  Sender: FDA-Public Use
  Company Number: 2004228262US

PATIENT
  Age: 35 Year
  Sex: Female
  Weight: 59 kg

DRUGS (2)
  1. DEPO-PROVERA [Suspect]
     Indication: CONTRACEPTION
     Dosage: EVERY 3 MONTHS, 1ST INJECTION, UNK
     Dates: start: 20010101, end: 20010101
  2. DEPO-PROVERA [Suspect]
     Indication: CONTRACEPTION
     Dosage: EVERY 3 MONTHS, 1ST INJECTION, UNK
     Dates: start: 20040401, end: 20040401

REACTIONS (1)
  - ANAPHYLACTIC REACTION [None]
